FAERS Safety Report 12765866 (Version 1)
Quarter: 2016Q3

REPORT INFORMATION
  Report Type: Spontaneous
  Country: US (occurrence: US)
  Receive Date: 20160915
  Receipt Date: 20160915
  Transmission Date: 20161109
  Serious: Yes (Other)
  Sender: FDA-Public Use
  Company Number: None

PATIENT
  Sex: Male

DRUGS (1)
  1. CAPECITABINE 500MG TEVA [Suspect]
     Active Substance: CAPECITABINE
     Indication: GALLBLADDER CANCER
     Dosage: 1500 MG IN AM AND 2000 MG IN PM 14 DAYS ON AND 7 DAYS OFF PO
     Route: 048
     Dates: start: 20160621

REACTIONS (7)
  - Dermatomyositis [None]
  - Hypersensitivity [None]
  - Skin discolouration [None]
  - Swelling [None]
  - Paralysis [None]
  - Eye swelling [None]
  - Polymyositis [None]
